FAERS Safety Report 25299473 (Version 2)
Quarter: 2025Q2

REPORT INFORMATION
  Report Type: Spontaneous
  Country: CZ (occurrence: CZ)
  Receive Date: 20250512
  Receipt Date: 20250526
  Transmission Date: 20250716
  Serious: Yes (Hospitalization, Disabling, Other)
  Sender: TEVA
  Company Number: None

PATIENT
  Age: 74 Year
  Sex: Female

DRUGS (2)
  1. OLANZAPINE [Suspect]
     Active Substance: OLANZAPINE
     Indication: Negativism
     Dosage: OLANZAPINE ACTAVIS; 0-0-1; ADMINISTRATION INTERRUPTED DURING HOSPITALIZATION
     Route: 065
     Dates: start: 202501, end: 202503
  2. OLANZAPINE [Suspect]
     Active Substance: OLANZAPINE
     Indication: Negativism
     Dosage: OLANZAPINE ACTAVIS; 0-0-1
     Route: 065
     Dates: start: 202504, end: 20250409

REACTIONS (9)
  - Faeces hard [Unknown]
  - Decreased appetite [Not Recovered/Not Resolved]
  - Apathy [Not Recovered/Not Resolved]
  - Joint stiffness [Not Recovered/Not Resolved]
  - Musculoskeletal stiffness [Not Recovered/Not Resolved]
  - Mobility decreased [Not Recovered/Not Resolved]
  - Confusional state [Not Recovered/Not Resolved]
  - Vomiting [Unknown]
  - Incontinence [Unknown]

NARRATIVE: CASE EVENT DATE: 20250201
